FAERS Safety Report 8384779-2 (Version None)
Quarter: 2012Q2

REPORT INFORMATION
  Report Type: 
  Country: None (occurrence: None)
  Receive Date: 20120524
  Receipt Date: 20120514
  Transmission Date: 20120825
  Serious: Yes (Other)
  Sender: FDA-Public Use
  Company Number: FR-FRI-1000030712

PATIENT
  Age: 30 Year
  Sex: Female

DRUGS (3)
  1. ESCITALOPRAM [Suspect]
     Route: 048
  2. LEVOTHYROXINE SODIUM [Concomitant]
  3. ESCITALOPRAM [Suspect]
     Dosage: 10 MG
     Route: 048

REACTIONS (1)
  - MYOPIA [None]
